FAERS Safety Report 19276405 (Version 1)
Quarter: 2021Q2

REPORT INFORMATION
  Report Type: Spontaneous
  Country: GB (occurrence: GB)
  Receive Date: 20210520
  Receipt Date: 20210520
  Transmission Date: 20210717
  Serious: Yes (Other)
  Sender: FDA-Public Use
  Company Number: GB-AUROBINDO-AUR-APL-2021-020637

PATIENT
  Age: 27 Year

DRUGS (4)
  1. ARIPIPRAZOLE. [Suspect]
     Active Substance: ARIPIPRAZOLE
     Indication: PRODUCT USED FOR UNKNOWN INDICATION
     Dosage: 400 MILLIGRAM (ONCE IN A MONTH)
     Route: 030
     Dates: start: 20201207, end: 20210202
  2. CLOPIXOL [Suspect]
     Active Substance: ZUCLOPENTHIXOL
     Indication: PRODUCT USED FOR UNKNOWN INDICATION
     Dosage: 350 MILLIGRAM, EVERY WEEK
     Route: 030
     Dates: start: 20200523, end: 20200804
  3. OLANZAPINE. [Suspect]
     Active Substance: OLANZAPINE
     Indication: PRODUCT USED FOR UNKNOWN INDICATION
     Dosage: 5 MILLIGRAM, ONCE A DAY
     Route: 048
     Dates: start: 20200917, end: 20201030
  4. PROCYCLIDINE [Concomitant]
     Active Substance: PROCYCLIDINE
     Indication: PRODUCT USED FOR UNKNOWN INDICATION
     Dosage: 5 MILLIGRAM, TWO TIMES A DAY
     Route: 048
     Dates: start: 20210510

REACTIONS (1)
  - Oculogyric crisis [Not Recovered/Not Resolved]

NARRATIVE: CASE EVENT DATE: 20200916
